FAERS Safety Report 7592513-9 (Version None)
Quarter: 2011Q3

REPORT INFORMATION
  Report Type: 
  Country: None (occurrence: None)
  Receive Date: 20110706
  Receipt Date: 20110623
  Transmission Date: 20111222
  Serious: Yes (Other)
  Sender: FDA-Public Use
  Company Number: US-SANOFI-AVENTIS-2011SA031207

PATIENT
  Sex: Female
  Weight: 114 kg

DRUGS (7)
  1. PERPHENAZINE [Concomitant]
  2. LANTUS [Suspect]
     Indication: TYPE 2 DIABETES MELLITUS
     Route: 058
     Dates: start: 20060101
  3. HYDROCHLOROTHIAZIDE [Concomitant]
  4. ACTOS [Concomitant]
  5. FERREX [Concomitant]
  6. NEXIUM [Concomitant]
  7. MICARDIS [Concomitant]

REACTIONS (2)
  - EYE LASER SURGERY [None]
  - SCHIZOPHRENIA [None]
